FAERS Safety Report 23013648 (Version 1)
Quarter: 2023Q4

REPORT INFORMATION
  Report Type: Spontaneous
  Country: GB (occurrence: GB)
  Receive Date: 20231001
  Receipt Date: 20231001
  Transmission Date: 20240110
  Serious: Yes (Other)
  Sender: FDA-Public Use
  Company Number: None

PATIENT
  Age: 76 Year
  Sex: Male
  Weight: 111 kg

DRUGS (7)
  1. AMLODIPINE [Suspect]
     Active Substance: AMLODIPINE BESYLATE
     Indication: Product used for unknown indication
     Dosage: 5 MILLIGRAM DAILY; ONE TO BE TAKEN IN THE MORNING, UNIT DOSE : 5 MG, THERAPY END DATE : NASK
     Route: 065
     Dates: start: 20230522
  2. ATORVASTATIN [Concomitant]
     Active Substance: ATORVASTATIN
     Indication: Product used for unknown indication
     Dosage: 1 DOSAGE FORMS DAILY; ONE TO BE TAKEN AT NIGHT
     Dates: start: 20230522
  3. BISOPROLOL [Concomitant]
     Active Substance: BISOPROLOL\BISOPROLOL FUMARATE
     Indication: Product used for unknown indication
     Dosage: 1 DOSAGE FORMS DAILY; ONE TO BE TAKEN IN THE MORNING
     Dates: start: 20230522
  4. COCODAMOL [Concomitant]
     Active Substance: ACETAMINOPHEN\CODEINE PHOSPHATE
     Indication: Product used for unknown indication
     Dosage: TAKE 1 OR 2 4 TIMES/DAY
     Dates: start: 20230522
  5. KENALOG [Concomitant]
     Active Substance: TRIAMCINOLONE ACETONIDE
     Indication: Product used for unknown indication
     Dosage: USE AS DIRECTED, DURATION : 1 DAY
     Dates: start: 20230627, end: 20230628
  6. RIVAROXABAN [Concomitant]
     Active Substance: RIVAROXABAN
     Indication: Product used for unknown indication
     Dosage: 1 DOSAGE FORMS DAILY; ONE TO BE TAKEN DAILY
     Dates: start: 20230522
  7. TELMISARTAN [Concomitant]
     Active Substance: TELMISARTAN
     Indication: Product used for unknown indication
     Dosage: 1 DOSAGE FORMS DAILY; ONE TO BE TAKEN IN THE MORNING
     Dates: start: 20230522

REACTIONS (1)
  - Joint swelling [Recovering/Resolving]
